FAERS Safety Report 11135225 (Version 1)
Quarter: 2015Q2

REPORT INFORMATION
  Report Type: Report from Study
  Country: ES (occurrence: ES)
  Receive Date: 20150525
  Receipt Date: 20150525
  Transmission Date: 20150821
  Serious: Yes (Death, Other)
  Sender: FDA-Public Use
  Company Number: ES-009507513-1505ESP009052

PATIENT

DRUGS (9)
  1. PEGINTERFERON ALFA-2B [Suspect]
     Active Substance: PEGINTERFERON ALFA-2B
     Indication: CHRONIC HEPATITIS C
     Dosage: 1.5 MICROGRAM PER KILOGRAM,1 IN 1 WEEK
     Route: 065
  2. PEGINTERFERON ALFA-2A [Suspect]
     Active Substance: PEGINTERFERON ALFA-2A
     Dosage: 180 MICROGRAM, 1 IN 1 WEEK
     Route: 065
  3. TELAPREVIR [Suspect]
     Active Substance: TELAPREVIR
     Indication: HIV INFECTION
     Dosage: 1125 MG, 2 IN 1 DAY
     Route: 048
  4. BOCEPREVIR [Suspect]
     Active Substance: BOCEPREVIR
     Indication: CHRONIC HEPATITIS C
     Dosage: 800 MG, 1 IN 8 HR
     Route: 048
  5. RIBAVIRIN. [Suspect]
     Active Substance: RIBAVIRIN
     Indication: HIV INFECTION
  6. TELAPREVIR [Suspect]
     Active Substance: TELAPREVIR
     Indication: CHRONIC HEPATITIS C
     Dosage: 750 MG, Q8H
     Route: 048
  7. RIBAVIRIN. [Suspect]
     Active Substance: RIBAVIRIN
     Indication: CHRONIC HEPATITIS C
     Dosage: 800-1200 MG DAILY
     Route: 048
  8. BOCEPREVIR [Suspect]
     Active Substance: BOCEPREVIR
     Indication: HIV INFECTION
  9. PEGINTERFERON ALFA-2B [Suspect]
     Active Substance: PEGINTERFERON ALFA-2B
     Indication: HIV INFECTION

REACTIONS (10)
  - Ascites [Unknown]
  - Anaemia [Unknown]
  - Rash [Unknown]
  - Thrombocytopenia [Unknown]
  - Hepatic failure [Unknown]
  - Hepatic encephalopathy [Unknown]
  - Gastrointestinal haemorrhage [Unknown]
  - Neutropenia [Unknown]
  - Depression [Unknown]
  - Hepatic failure [Fatal]
